FAERS Safety Report 11068437 (Version 1)
Quarter: 2015Q2

REPORT INFORMATION
  Report Type: Spontaneous
  Country: None (occurrence: None)
  Receive Date: 20150424
  Receipt Date: 20150424
  Transmission Date: 20150821
  Serious: Yes (Hospitalization)
  Sender: FDA-Public Use
  Company Number: None

PATIENT
  Age: 3 Year
  Sex: Female

DRUGS (1)
  1. MIRALAX [Suspect]
     Active Substance: POLYETHYLENE GLYCOL 3350
     Indication: CONSTIPATION
     Dosage: THREE TIMES DAILY  TAKEN BY MOUTH
     Route: 048

REACTIONS (12)
  - Malaise [None]
  - Muscular weakness [None]
  - Abdominal distension [None]
  - Haematemesis [None]
  - Weight decreased [None]
  - Respiratory distress [None]
  - Pleural effusion [None]
  - Bedridden [None]
  - Abdominal pain [None]
  - Renal disorder [None]
  - Clostridium difficile infection [None]
  - Urinary incontinence [None]

NARRATIVE: CASE EVENT DATE: 20121112
